FAERS Safety Report 19200170 (Version 1)
Quarter: 2021Q2

REPORT INFORMATION
  Report Type: Report from Study
  Country: KR (occurrence: KR)
  Receive Date: 20210430
  Receipt Date: 20210430
  Transmission Date: 20210717
  Serious: Yes (Hospitalization, Other)
  Sender: FDA-Public Use
  Company Number: KR-TAKEDA-KR202007101

PATIENT

DRUGS (15)
  1. PEGYLATED COAGULATION FACTOR VIII [Suspect]
     Active Substance: ANTIHEMOPHILIC FACTOR, PEGYLATED (MW 20000) HUMAN SEQUENCE RECOMBINANT
     Dosage: 1065 INTERNATIONAL UNIT/KILOGRAM, 2X A WEEK
     Route: 042
     Dates: start: 20200123
  2. PEGYLATED COAGULATION FACTOR VIII [Suspect]
     Active Substance: ANTIHEMOPHILIC FACTOR, PEGYLATED (MW 20000) HUMAN SEQUENCE RECOMBINANT
     Dosage: 1065 INTERNATIONAL UNIT/KILOGRAM, 2X A WEEK
     Route: 042
     Dates: start: 20200123
  3. PEGYLATED COAGULATION FACTOR VIII [Suspect]
     Active Substance: ANTIHEMOPHILIC FACTOR, PEGYLATED (MW 20000) HUMAN SEQUENCE RECOMBINANT
     Dosage: 1041 INTERNATIONAL UNIT
     Route: 042
     Dates: start: 20200225, end: 20200304
  4. PEGYLATED COAGULATION FACTOR VIII [Suspect]
     Active Substance: ANTIHEMOPHILIC FACTOR, PEGYLATED (MW 20000) HUMAN SEQUENCE RECOMBINANT
     Dosage: 1041 INTERNATIONAL UNIT
     Route: 042
     Dates: start: 20200225, end: 20200304
  5. PEGYLATED COAGULATION FACTOR VIII [Suspect]
     Active Substance: ANTIHEMOPHILIC FACTOR, PEGYLATED (MW 20000) HUMAN SEQUENCE RECOMBINANT
     Indication: FACTOR VIII DEFICIENCY
     Dosage: 1065 INTERNATIONAL UNIT/KILOGRAM, 2X A WEEK
     Route: 042
     Dates: start: 20191107, end: 20200119
  6. PEGYLATED COAGULATION FACTOR VIII [Suspect]
     Active Substance: ANTIHEMOPHILIC FACTOR, PEGYLATED (MW 20000) HUMAN SEQUENCE RECOMBINANT
     Dosage: 1065 INTERNATIONAL UNIT/KILOGRAM, 2X A WEEK
     Route: 042
     Dates: start: 20200123
  7. PEGYLATED COAGULATION FACTOR VIII [Suspect]
     Active Substance: ANTIHEMOPHILIC FACTOR, PEGYLATED (MW 20000) HUMAN SEQUENCE RECOMBINANT
     Dosage: 1041 INTERNATIONAL UNIT
     Route: 042
     Dates: start: 20200225, end: 20200304
  8. PEGYLATED COAGULATION FACTOR VIII [Suspect]
     Active Substance: ANTIHEMOPHILIC FACTOR, PEGYLATED (MW 20000) HUMAN SEQUENCE RECOMBINANT
     Dosage: 1108 INTERNATIONAL UNIT
     Route: 042
     Dates: start: 20200123, end: 20200124
  9. PEGYLATED COAGULATION FACTOR VIII [Suspect]
     Active Substance: ANTIHEMOPHILIC FACTOR, PEGYLATED (MW 20000) HUMAN SEQUENCE RECOMBINANT
     Dosage: 1500 INTERNATIONAL UNIT/KILOGRAM, 2X A WEEK
     Route: 042
     Dates: start: 20200120, end: 20200122
  10. PEGYLATED COAGULATION FACTOR VIII [Suspect]
     Active Substance: ANTIHEMOPHILIC FACTOR, PEGYLATED (MW 20000) HUMAN SEQUENCE RECOMBINANT
     Dosage: 1500 INTERNATIONAL UNIT/KILOGRAM, 2X A WEEK
     Route: 042
     Dates: start: 20200120, end: 20200122
  11. PEGYLATED COAGULATION FACTOR VIII [Suspect]
     Active Substance: ANTIHEMOPHILIC FACTOR, PEGYLATED (MW 20000) HUMAN SEQUENCE RECOMBINANT
     Indication: FACTOR VIII DEFICIENCY
     Dosage: 1065 INTERNATIONAL UNIT/KILOGRAM, 2X A WEEK
     Route: 042
     Dates: start: 20191107, end: 20200119
  12. PEGYLATED COAGULATION FACTOR VIII [Suspect]
     Active Substance: ANTIHEMOPHILIC FACTOR, PEGYLATED (MW 20000) HUMAN SEQUENCE RECOMBINANT
     Dosage: 1500 INTERNATIONAL UNIT/KILOGRAM, 2X A WEEK
     Route: 042
     Dates: start: 20200120, end: 20200122
  13. PEGYLATED COAGULATION FACTOR VIII [Suspect]
     Active Substance: ANTIHEMOPHILIC FACTOR, PEGYLATED (MW 20000) HUMAN SEQUENCE RECOMBINANT
     Indication: FACTOR VIII DEFICIENCY
     Dosage: 1065 INTERNATIONAL UNIT/KILOGRAM, 2X A WEEK
     Route: 042
     Dates: start: 20191107, end: 20200119
  14. PEGYLATED COAGULATION FACTOR VIII [Suspect]
     Active Substance: ANTIHEMOPHILIC FACTOR, PEGYLATED (MW 20000) HUMAN SEQUENCE RECOMBINANT
     Dosage: 1108 INTERNATIONAL UNIT
     Route: 042
     Dates: start: 20200123, end: 20200124
  15. PEGYLATED COAGULATION FACTOR VIII [Suspect]
     Active Substance: ANTIHEMOPHILIC FACTOR, PEGYLATED (MW 20000) HUMAN SEQUENCE RECOMBINANT
     Dosage: 1108 INTERNATIONAL UNIT
     Route: 042
     Dates: start: 20200123, end: 20200124

REACTIONS (1)
  - Haemarthrosis [Recovered/Resolved]

NARRATIVE: CASE EVENT DATE: 20200119
